FAERS Safety Report 23614112 (Version 9)
Quarter: 2025Q3

REPORT INFORMATION
  Report Type: Report from Study
  Country: CN (occurrence: CN)
  Receive Date: 20240310
  Receipt Date: 20250721
  Transmission Date: 20251020
  Serious: Yes (Hospitalization)
  Sender: ABBVIE
  Company Number: CN-ABBVIE-5651971

PATIENT
  Age: 29 Year
  Sex: Female
  Weight: 52 kg

DRUGS (15)
  1. RINVOQ [Suspect]
     Active Substance: UPADACITINIB
     Indication: Dermatitis atopic
     Dosage: FORM STRENGTH: 15 MILLIGRAM?DOSE FORM-PROLONGED-RELEASE TABLET
     Route: 048
     Dates: start: 202312, end: 20240115
  2. RINVOQ [Suspect]
     Active Substance: UPADACITINIB
     Indication: Dermatitis atopic
     Dosage: FORM STRENGTH: 15 MILLIGRAM
     Route: 048
     Dates: start: 20240115
  3. RINVOQ [Suspect]
     Active Substance: UPADACITINIB
     Indication: Dermatitis atopic
     Dosage: FORM STRENGTH: 15 MILLIGRAM?DOSE FORM-PROLONGED-RELEASE TABLET
     Route: 048
     Dates: start: 20230320, end: 202312
  4. FUSIDIC ACID [Concomitant]
     Active Substance: FUSIDIC ACID
     Indication: Dermatitis atopic
     Dosage: 1.0 GRAM
     Dates: start: 20250123
  5. PIMECROLIMUS [Concomitant]
     Active Substance: PIMECROLIMUS
     Indication: Dermatitis atopic
     Dosage: 1.0 GRAM
     Dates: start: 20241022, end: 20241108
  6. LORATADINE [Concomitant]
     Active Substance: LORATADINE
     Indication: Dermatitis atopic
     Route: 048
     Dates: start: 20240117, end: 20240326
  7. ESOMEPRAZOLE MAGNESIUM [Concomitant]
     Active Substance: ESOMEPRAZOLE MAGNESIUM
     Indication: Prophylaxis
     Dosage: 20 MILLIGRAM?ENTERIC-COATED TABLETS
     Route: 048
     Dates: start: 20240130, end: 20240203
  8. TACROLIMUS [Concomitant]
     Active Substance: TACROLIMUS
     Indication: Dermatitis atopic
     Dosage: 1.0 GRAM
     Dates: start: 20240910, end: 20240918
  9. CRISABOROLE [Concomitant]
     Active Substance: CRISABOROLE
     Indication: Dermatitis atopic
     Dosage: TOPICAL
     Route: 001
     Dates: start: 20240115
  10. AMINOPHYLLINE [Concomitant]
     Active Substance: AMINOPHYLLINE
     Indication: Dermatitis atopic
     Dosage: 0.25 GRAM?INTRAVENOUS DRIP
     Dates: start: 20240128, end: 20240204
  11. DERMATOPHAGOIDES FARINAE [Concomitant]
     Active Substance: DERMATOPHAGOIDES FARINAE
     Indication: Immune tolerance induction
     Dosage: 2 DROP
     Route: 060
     Dates: start: 20240117
  12. MOMETASONE FUROATE [Concomitant]
     Active Substance: MOMETASONE FUROATE
     Indication: Dermatitis atopic
     Dates: start: 20240508
  13. LEVOCETIRIZINE HYDROCHLORIDE [Concomitant]
     Active Substance: LEVOCETIRIZINE HYDROCHLORIDE
     Indication: Dermatitis atopic
     Dosage: 5 MILLIGRAM
     Route: 048
     Dates: start: 20250123
  14. Mupirox [Concomitant]
     Indication: Dermatitis atopic
     Dates: start: 20240806, end: 20240810
  15. UREA [Concomitant]
     Active Substance: UREA
     Indication: Dermatitis atopic
     Dosage: 3 GRAM?ROA-TOPICAL
     Dates: start: 20240115

REACTIONS (6)
  - Asthma [Recovered/Resolved]
  - Pneumonia [Recovered/Resolved]
  - Upper respiratory tract infection [Recovered/Resolved]
  - Cheilitis [Recovered/Resolved]
  - Upper respiratory tract infection [Recovered/Resolved]
  - Oral herpes [Recovered/Resolved]

NARRATIVE: CASE EVENT DATE: 20240128
